FAERS Safety Report 10389850 (Version 1)
Quarter: 2014Q3

REPORT INFORMATION
  Report Type: Spontaneous
  Country: DE (occurrence: None)
  Receive Date: 20140813
  Receipt Date: 20140813
  Transmission Date: 20150326
  Serious: Yes (Death)
  Sender: FDA-Public Use
  Company Number: IMP_07790_2014

PATIENT
  Age: 75 Year
  Sex: Female

DRUGS (3)
  1. VALPROIC ACID (VALPROIC ACID) [Suspect]
     Active Substance: VALPROIC ACID
     Indication: EPILEPSY
     Dosage: DF
  2. DIBENZEPIN [Suspect]
     Active Substance: DIBENZEPIN HYDROCHLORIDE
     Indication: PRODUCT USED FOR UNKNOWN INDICATION
  3. MELPERON [Suspect]
     Active Substance: MELPERONE
     Indication: PRODUCT USED FOR UNKNOWN INDICATION
     Dosage: DF

REACTIONS (1)
  - Hepatic failure [None]
